FAERS Safety Report 7775513-5 (Version None)
Quarter: 2011Q3

REPORT INFORMATION
  Report Type: 
  Country: None (occurrence: None)
  Receive Date: 20110923
  Receipt Date: 20101117
  Transmission Date: 20111222
  Serious: Yes (Hospitalization)
  Sender: FDA-Public Use
  Company Number: GB-ROCHE-744487

PATIENT

DRUGS (3)
  1. DACLIZUMAB [Suspect]
     Indication: LIVER TRANSPLANT
     Route: 065
  2. TACROLIMUS [Suspect]
     Indication: LIVER TRANSPLANT
     Route: 065
  3. MYCOPHENOLATE MOFETIL [Suspect]
     Indication: LIVER TRANSPLANT
     Route: 065

REACTIONS (9)
  - RESPIRATORY DISTRESS [None]
  - OXYGEN SATURATION DECREASED [None]
  - VOMITING [None]
  - VARICELLA [None]
  - DIARRHOEA [None]
  - BRADYCARDIA [None]
  - HYPERGLYCAEMIA [None]
  - RASH VESICULAR [None]
  - HEPATIC FUNCTION ABNORMAL [None]
